FAERS Safety Report 9796565 (Version 2)
Quarter: 2014Q1

REPORT INFORMATION
  Report Type: Spontaneous
  Country: US (occurrence: US)
  Receive Date: 20140103
  Receipt Date: 20140103
  Transmission Date: 20141002
  Serious: No
  Sender: FDA-Public Use
  Company Number: US-PFIZER INC-2013363697

PATIENT
  Sex: Male

DRUGS (2)
  1. LIPITOR [Suspect]
     Dosage: 10 MG, UNK
  2. ATORVASTATIN CALCIUM [Suspect]
     Dosage: 10 MG, UNK

REACTIONS (2)
  - Muscle disorder [Unknown]
  - Arthropathy [Unknown]
